FAERS Safety Report 9370525 (Version 1)
Quarter: 2013Q2

REPORT INFORMATION
  Report Type: Spontaneous
  Country: TR (occurrence: TR)
  Receive Date: 20130626
  Receipt Date: 20130626
  Transmission Date: 20140414
  Serious: Yes (Hospitalization)
  Sender: FDA-Public Use
  Company Number: TR-ABBOTT-13X-161-1110046-00

PATIENT
  Age: 7 Year
  Sex: Male

DRUGS (2)
  1. VALPROATE SODIUM [Suspect]
     Indication: EPILEPSY
  2. METHYLPHENIDATE [Suspect]
     Indication: ATTENTION DEFICIT/HYPERACTIVITY DISORDER

REACTIONS (5)
  - Tongue disorder [Unknown]
  - Dyskinesia [Recovered/Resolved]
  - Tardive dyskinesia [Unknown]
  - Psychomotor hyperactivity [Unknown]
  - Dyskinesia [Unknown]
